FAERS Safety Report 6078818-1 (Version None)
Quarter: 2009Q1

REPORT INFORMATION
  Report Type: 
  Country: None (occurrence: None)
  Receive Date: 20090216
  Receipt Date: 20080212
  Transmission Date: 20090719
  Serious: No
  Sender: FDA-Public Use
  Company Number: US-BAYER-200810640BCC

PATIENT
  Sex: Male

DRUGS (3)
  1. RID SHAMPOO [Suspect]
     Indication: LICE INFESTATION
     Route: 061
  2. RID MOUSSE [Suspect]
     Indication: LICE INFESTATION
     Route: 061
  3. RID HOUSEHOLD SPRAY [Concomitant]

REACTIONS (1)
  - PRURITUS [None]
